FAERS Safety Report 9088811 (Version 1)
Quarter: 2013Q1

REPORT INFORMATION
  Report Type: Spontaneous
  Country: US (occurrence: US)
  Receive Date: 20130201
  Receipt Date: 20130201
  Transmission Date: 20140127
  Serious: Yes (Other)
  Sender: FDA-Public Use
  Company Number: CHPA2013US001747

PATIENT
  Age: 64 Year
  Sex: Female

DRUGS (2)
  1. 4 WAY SALINE MOISTURIZING MIST [Suspect]
     Indication: EPISTAXIS
     Dosage: 2 TO 4 SPRAYS AS NEEDED
     Route: 045
  2. 4 WAY FAST ACTING NASAL SPRAY [Suspect]
     Indication: EPISTAXIS
     Dosage: UNK, UNK
     Route: 045

REACTIONS (4)
  - Hepatopulmonary syndrome [Not Recovered/Not Resolved]
  - Nasal discomfort [Not Recovered/Not Resolved]
  - Therapeutic response unexpected [Unknown]
  - Off label use [Unknown]
